FAERS Safety Report 17823330 (Version 4)
Quarter: 2020Q2

REPORT INFORMATION
  Report Type: Spontaneous
  Country: CN (occurrence: CN)
  Receive Date: 20200526
  Receipt Date: 20200605
  Transmission Date: 20200714
  Serious: Yes (Death, Other)
  Sender: FDA-Public Use
  Company Number: NVSC2020CN143337

PATIENT
  Age: 82 Year
  Sex: Male

DRUGS (1)
  1. ZYKADIA [Suspect]
     Active Substance: CERITINIB
     Indication: LUNG NEOPLASM MALIGNANT
     Dosage: 450 MG, QD
     Route: 048
     Dates: start: 20200313

REACTIONS (11)
  - Lung neoplasm malignant [Fatal]
  - Malignant neoplasm progression [Fatal]
  - Movement disorder [Unknown]
  - Metastases to lymph nodes [Unknown]
  - Dyspnoea [Fatal]
  - General physical health deterioration [Unknown]
  - Weight decreased [Unknown]
  - Pleural effusion [Unknown]
  - Depressed mood [Recovering/Resolving]
  - Interstitial lung disease [Fatal]
  - Treatment failure [Unknown]

NARRATIVE: CASE EVENT DATE: 20200411
